FAERS Safety Report 9478662 (Version 1)
Quarter: 2013Q3

REPORT INFORMATION
  Report Type: Report from Study
  Country: US (occurrence: US)
  Receive Date: 20130827
  Receipt Date: 20130827
  Transmission Date: 20140515
  Serious: Yes (Death)
  Sender: FDA-Public Use
  Company Number: US-ABBOTT-13P-163-1137767-00

PATIENT
  Age: 79 Year
  Sex: Male
  Weight: 59.02 kg

DRUGS (1)
  1. ZEMPLAR [Suspect]
     Indication: RENAL FAILURE ACUTE
     Dates: start: 2012

REACTIONS (1)
  - Cardio-respiratory arrest [Fatal]
